FAERS Safety Report 12717593 (Version 1)
Quarter: 2016Q3

REPORT INFORMATION
  Report Type: Spontaneous
  Country: US (occurrence: US)
  Receive Date: 20160906
  Receipt Date: 20160906
  Transmission Date: 20161109
  Serious: Yes (Other)
  Sender: FDA-Public Use
  Company Number: US-BAYER-2016-171908

PATIENT
  Sex: Female

DRUGS (1)
  1. MIRENA [Suspect]
     Active Substance: LEVONORGESTREL
     Dosage: UNK
     Route: 015
     Dates: start: 20160810, end: 20160810

REACTIONS (3)
  - Procedural haemorrhage [None]
  - Unintentional medical device removal [None]
  - Complication of device insertion [None]

NARRATIVE: CASE EVENT DATE: 20160810
